FAERS Safety Report 5131115-0 (Version None)
Quarter: 2006Q4

REPORT INFORMATION
  Report Type: 
  Country: None (occurrence: None)
  Receive Date: 20061016
  Receipt Date: 20061004
  Transmission Date: 20070319
  Serious: Yes (Other)
  Sender: FDA-Public Use
  Company Number: 2006122968

PATIENT
  Age: 67 Year
  Sex: Female

DRUGS (5)
  1. BEXTRA [Suspect]
     Indication: PAIN
     Dates: start: 20050101
  2. ALL OTHER THERAPEUTIC PRODUCTS (ALL OTHER THERAPEUTIC PRODUCTS) [Concomitant]
  3. ENALAPRIL MALEATE [Concomitant]
  4. VIOXX [Concomitant]
  5. ARCOXIA [Concomitant]

REACTIONS (1)
  - CEREBROVASCULAR ACCIDENT [None]
